FAERS Safety Report 10364572 (Version 1)
Quarter: 2014Q3

REPORT INFORMATION
  Report Type: Spontaneous
  Country: US (occurrence: None)
  Receive Date: 20140805
  Receipt Date: 20140805
  Transmission Date: 20150326
  Serious: No
  Sender: FDA-Public Use
  Company Number: None

PATIENT
  Age: 25 Year
  Sex: Female

DRUGS (1)
  1. VIVITROL [Suspect]
     Active Substance: NALTREXONE
     Dosage: Q4WKS
     Route: 030

REACTIONS (2)
  - Nausea [None]
  - Headache [None]

NARRATIVE: CASE EVENT DATE: 201407
